FAERS Safety Report 12665819 (Version 1)
Quarter: 2016Q3

REPORT INFORMATION
  Report Type: Spontaneous
  Country: US (occurrence: US)
  Receive Date: 20160818
  Receipt Date: 20160818
  Transmission Date: 20161109
  Serious: Yes (Death)
  Sender: FDA-Public Use
  Company Number: US-BION-20160376

PATIENT
  Age: 57 Year
  Sex: Male

DRUGS (5)
  1. LOPRAMIDE HCL CAPSULES [Suspect]
     Active Substance: LOPERAMIDE HYDROCHLORIDE
     Route: 048
  2. OXYCODONE [Concomitant]
     Active Substance: OXYCODONE
  3. DIPHENHYDRAMINE. [Concomitant]
     Active Substance: DIPHENHYDRAMINE
  4. DOXYLAMINE [Concomitant]
     Active Substance: DOXYLAMINE
  5. DEXTROMETHORPHAN [Concomitant]
     Active Substance: DEXTROMETHORPHAN

REACTIONS (1)
  - Drug abuse [Fatal]
